FAERS Safety Report 19971386 (Version 5)
Quarter: 2022Q2

REPORT INFORMATION
  Report Type: Spontaneous
  Country: IT (occurrence: IT)
  Receive Date: 20211020
  Receipt Date: 20220606
  Transmission Date: 20220720
  Serious: Yes (Life-Threatening, Other)
  Sender: FDA-Public Use
  Company Number: IT-CELLTRION INC.-2021IT014080

PATIENT

DRUGS (58)
  1. TRASTUZUMAB [Suspect]
     Active Substance: TRASTUZUMAB
     Indication: HER2 positive breast cancer
     Dosage: UNK
     Route: 065
  2. TRASTUZUMAB [Suspect]
     Active Substance: TRASTUZUMAB
     Indication: Hormone receptor positive breast cancer
     Dosage: 8 MG/KG (LOADING DOSE 4 CYCLES) EVERY 3 WEEKS
     Route: 065
     Dates: start: 201201, end: 201204
  3. TRASTUZUMAB [Suspect]
     Active Substance: TRASTUZUMAB
     Indication: Breast cancer metastatic
     Dosage: 6 MG/KG (MAINTENANCE DOSE 4 CYCLES) EVERY 3 WEEKS
     Route: 065
     Dates: start: 201201, end: 201204
  4. TRASTUZUMAB [Suspect]
     Active Substance: TRASTUZUMAB
     Indication: Triple positive breast cancer
     Dosage: EVERY THREE WEEKS (FIFTH-LINE THERAPY,RECEIVED NINE COURSES)
     Dates: start: 201907, end: 201912
  5. TRASTUZUMAB [Suspect]
     Active Substance: TRASTUZUMAB
     Indication: Invasive ductal breast carcinoma
     Dosage: UNK
     Dates: start: 202003
  6. TRASTUZUMAB [Suspect]
     Active Substance: TRASTUZUMAB
     Dosage: EVERY THREE WEEKS (SIXTH-LINE THERAPY,RECEIVED NINE COURSES)
  7. TRASTUZUMAB [Suspect]
     Active Substance: TRASTUZUMAB
     Dosage: UNK
  8. GEMCITABINE [Suspect]
     Active Substance: GEMCITABINE
     Indication: Hormone receptor positive breast cancer
     Dosage: 1000 MG/M2, DAY 1, DAY 8 (SIXTH-LINE THERAPY)
     Route: 065
  9. GEMCITABINE [Suspect]
     Active Substance: GEMCITABINE
     Indication: HER2 positive breast cancer
     Dosage: 25% REDUCED DOSE GEMCITABINE
     Dates: start: 202008, end: 202012
  10. GEMCITABINE [Suspect]
     Active Substance: GEMCITABINE
     Indication: Breast cancer metastatic
     Dosage: UNK
  11. GEMCITABINE [Suspect]
     Active Substance: GEMCITABINE
     Indication: Triple positive breast cancer
     Dosage: UNK
  12. TRASTUZUMAB [Suspect]
     Active Substance: TRASTUZUMAB
     Indication: Invasive ductal breast carcinoma
     Dosage: 8 MG/KG, UNK
     Route: 065
     Dates: start: 201201, end: 201204
  13. TRASTUZUMAB [Suspect]
     Active Substance: TRASTUZUMAB
     Indication: Breast cancer
     Dosage: 6 MG/KG, PER CYCLE (EVERY THREE WEEKS FOR FOUR CYCLES)
     Route: 065
  14. GLUTATHIONE [Suspect]
     Active Substance: GLUTATHIONE
     Indication: Triple positive breast cancer
     Dosage: SIXTH CYCLE OF CHEMOTHERAPY
  15. GLUTATHIONE [Suspect]
     Active Substance: GLUTATHIONE
     Indication: Breast cancer metastatic
  16. PACLITAXEL [Suspect]
     Active Substance: PACLITAXEL
     Indication: HER2 positive breast cancer
     Dosage: 260 MG/M2
     Route: 065
  17. PACLITAXEL [Suspect]
     Active Substance: PACLITAXEL
     Indication: Hormone receptor positive breast cancer
     Dosage: 260 MG/M2 (FIFTH-LINE THERAPY, RECEIVED NINE COURSES)
     Dates: start: 201907, end: 201912
  18. PACLITAXEL [Suspect]
     Active Substance: PACLITAXEL
     Indication: Breast cancer metastatic
     Dosage: UNK
  19. PACLITAXEL [Suspect]
     Active Substance: PACLITAXEL
     Indication: Triple positive breast cancer
  20. CYCLOPHOSPHAMIDE [Suspect]
     Active Substance: CYCLOPHOSPHAMIDE
     Indication: Invasive ductal breast carcinoma
     Dosage: 600 MG/M2, PER 1 CYCLE (EVERY THREE WEEKS FOR FOUR CYCLES)
     Route: 065
     Dates: start: 201201, end: 201204
  21. XGEVA [Suspect]
     Active Substance: DENOSUMAB
     Indication: Metastases to bone
     Route: 065
  22. DOXORUBICIN HYDROCHLORIDE [Suspect]
     Active Substance: DOXORUBICIN HYDROCHLORIDE
     Indication: Invasive ductal breast carcinoma
     Dosage: (60 MG/M2,1 IN 3 WK)
     Route: 065
  23. NAVELBINE [Suspect]
     Active Substance: VINORELBINE TARTRATE
     Indication: Hormone receptor positive breast cancer
     Dosage: UNK
     Route: 065
  24. NAVELBINE [Suspect]
     Active Substance: VINORELBINE TARTRATE
     Indication: HER2 positive breast cancer
     Dosage: 25 MG/KG, EVERY 3 WEEKS (DAY 1-DAY8)
     Route: 065
  25. NAVELBINE [Suspect]
     Active Substance: VINORELBINE TARTRATE
     Indication: Breast cancer
  26. VINORELBINE [Suspect]
     Active Substance: VINORELBINE TARTRATE
     Indication: Product used for unknown indication
     Route: 065
  27. FILGRASTIM [Suspect]
     Active Substance: FILGRASTIM
     Indication: Prophylaxis
     Dosage: ADDITIONAL INFORMATION: UNIT=NOT AVAILABLE
     Route: 065
  28. DENOSUMAB [Suspect]
     Active Substance: DENOSUMAB
     Indication: Hormone receptor positive breast cancer
     Dosage: EVERY 4 WEEKS
     Route: 065
  29. DENOSUMAB [Suspect]
     Active Substance: DENOSUMAB
     Indication: HER2 positive breast cancer
  30. DOCETAXEL [Suspect]
     Active Substance: DOCETAXEL
     Indication: Hormone receptor positive breast cancer
     Dosage: 100 MG/M2
     Route: 065
  31. DOCETAXEL [Suspect]
     Active Substance: DOCETAXEL
     Indication: HER2 positive breast cancer
     Dosage: 100 MG/M2, PER CYCLE (EVERY THREE WEEKS FOR FOUR CYCLES)
     Route: 065
  32. DOCETAXEL [Suspect]
     Active Substance: DOCETAXEL
     Indication: Invasive ductal breast carcinoma
     Dosage: 100 MG/M2, PER CYCLE (EVERY THREE WEEKS FOR FOUR CYCLES)
     Route: 065
  33. DOCETAXEL [Suspect]
     Active Substance: DOCETAXEL
     Dosage: RESUMED AT 25% REDUCED DOSE
     Route: 065
  34. ADO-TRASTUZUMAB EMTANSINE [Suspect]
     Active Substance: ADO-TRASTUZUMAB EMTANSINE
     Indication: Hormone receptor positive breast cancer
     Dosage: 3.6 MG/KG EVERY 3 WEEKS
     Route: 065
     Dates: start: 201608
  35. ADO-TRASTUZUMAB EMTANSINE [Suspect]
     Active Substance: ADO-TRASTUZUMAB EMTANSINE
     Indication: HER2 positive breast cancer
  36. LAPATINIB [Suspect]
     Active Substance: LAPATINIB
     Indication: Hormone receptor positive breast cancer
     Dosage: 1250 MG, QD
     Route: 065
  37. LAPATINIB [Suspect]
     Active Substance: LAPATINIB
     Indication: HER2 positive breast cancer
     Dosage: 1250 MG
     Route: 065
  38. DOXORUBICIN [Suspect]
     Active Substance: DOXORUBICIN
     Indication: Hormone receptor positive breast cancer
     Dosage: 60 MG/KG, EVERY 3 WEEKS (4 CYCLES)
     Route: 065
  39. DOXORUBICIN [Suspect]
     Active Substance: DOXORUBICIN
     Indication: HER2 positive breast cancer
     Dosage: 60 MILLIGRAMS PER SQUARE METER, EVERY 3 WEEKS
     Route: 065
  40. CAPECITABINE [Suspect]
     Active Substance: CAPECITABINE
     Indication: HER2 positive breast cancer
     Dosage: 1000 MG/KG, QD (DAY1 - DAY 14)
     Route: 065
     Dates: start: 201810
  41. CAPECITABINE [Suspect]
     Active Substance: CAPECITABINE
     Indication: Hormone receptor positive breast cancer
  42. CYCLOPHOSPHAMIDE [Suspect]
     Active Substance: CYCLOPHOSPHAMIDE
     Indication: Hormone receptor positive breast cancer
     Dosage: 600 MG/M2
     Route: 065
  43. CYCLOPHOSPHAMIDE [Suspect]
     Active Substance: CYCLOPHOSPHAMIDE
     Indication: HER2 positive breast cancer
     Dosage: 600 MILLIGRAMS PER SQUARE METER, EVERY 2 WEEKS
     Route: 065
  44. PERTUZUMAB [Suspect]
     Active Substance: PERTUZUMAB
     Indication: Hormone receptor positive breast cancer
     Dosage: EVERY 3 WEEKS
     Route: 065
  45. PERTUZUMAB [Suspect]
     Active Substance: PERTUZUMAB
     Indication: HER2 positive breast cancer
  46. CAPECITABINE [Suspect]
     Active Substance: CAPECITABINE
     Indication: Hormone receptor positive breast cancer
     Dosage: 1000 MG/KG, DAY1 - DAY 14
     Route: 065
     Dates: start: 201810
  47. CAPECITABINE [Suspect]
     Active Substance: CAPECITABINE
     Indication: HER2 positive breast cancer
     Dosage: 1000 MG/KG, DAY1 - DAY 14
     Route: 065
     Dates: start: 201810
  48. PERTUZUMAB [Concomitant]
     Active Substance: PERTUZUMAB
  49. DOXORUBICIN [Concomitant]
     Active Substance: DOXORUBICIN
     Dosage: UNK
  50. DOXORUBICIN [Concomitant]
     Active Substance: DOXORUBICIN
     Dosage: 60 MILLIGRAMS PER SQUARE METER, EVERY 3 WEEKS
  51. GEMCITABINE [Concomitant]
     Active Substance: GEMCITABINE
  52. PACLITAXEL [Concomitant]
     Active Substance: PACLITAXEL
  53. DOCETAXEL [Concomitant]
     Active Substance: DOCETAXEL
     Dosage: 100 MILLIGRAMS PER SQUARE METER
  54. CYCLOPHOSPHAMIDE [Concomitant]
     Active Substance: CYCLOPHOSPHAMIDE
     Dosage: 600 MILLIGRAMS PER SQUARE METER, EVERY 2 WEEKS
  55. TAMOXIFEN [Concomitant]
     Active Substance: TAMOXIFEN
  56. LAPATINIB [Concomitant]
     Active Substance: LAPATINIB
     Dosage: 1250 UNK, QD
  57. CAPECITABINE [Concomitant]
     Active Substance: CAPECITABINE
     Dosage: 1000 MG/MQ BID D1-14
  58. GONADORELIN DIACETATE TETRAHYDRATE [Concomitant]
     Active Substance: GONADORELIN DIACETATE TETRAHYDRATE

REACTIONS (18)
  - Metastases to lung [Unknown]
  - Metastases to lymph nodes [Unknown]
  - Metastases to bone [Unknown]
  - Hypertransaminasaemia [Recovered/Resolved]
  - Hepatotoxicity [Unknown]
  - Anaemia [Recovered/Resolved]
  - Mucosal inflammation [Recovered/Resolved]
  - Mucosal inflammation [Recovered/Resolved]
  - Neutropenia [Recovered/Resolved]
  - Neutropenia [Recovered/Resolved]
  - Pain in extremity [Recovered/Resolved]
  - Hepatotoxicity [Unknown]
  - Hypertransaminasaemia [Unknown]
  - Hypertransaminasaemia [Recovered/Resolved]
  - Thrombocytopenia [Recovered/Resolved]
  - Thrombocytopenia [Unknown]
  - Pain in extremity [Recovered/Resolved]
  - Anaemia [Unknown]

NARRATIVE: CASE EVENT DATE: 20181001
